FAERS Safety Report 13246018 (Version 1)
Quarter: 2017Q1

REPORT INFORMATION
  Report Type: Spontaneous
  Country: CA (occurrence: CA)
  Receive Date: 20170217
  Receipt Date: 20170217
  Transmission Date: 20170428
  Serious: Yes (Hospitalization)
  Sender: FDA-Public Use
  Company Number: CA-ROCHE-1895113

PATIENT
  Age: 42 Year
  Sex: Male

DRUGS (16)
  1. OSELTAMIVIR [Suspect]
     Active Substance: OSELTAMIVIR
     Indication: INFLUENZA LIKE ILLNESS
     Route: 042
  2. AZTREONAM. [Concomitant]
     Active Substance: AZTREONAM
     Indication: ANTIBIOTIC THERAPY
     Route: 055
  3. MONTELUKAST [Concomitant]
     Active Substance: MONTELUKAST SODIUM
  4. VANCOMYCIN [Suspect]
     Active Substance: VANCOMYCIN
     Indication: PRODUCT USED FOR UNKNOWN INDICATION
     Route: 042
  5. DORNASE ALFA [Concomitant]
     Active Substance: DORNASE ALFA
     Indication: INHALATION THERAPY
     Route: 065
  6. BUDESONIDE/FORMOTEROL FUMARATE [Concomitant]
     Active Substance: BUDESONIDE\FORMOTEROL FUMARATE
  7. HYDROCORTISONE. [Concomitant]
     Active Substance: HYDROCORTISONE
  8. AZITHROMYCIN ANHYDROUS. [Concomitant]
     Active Substance: AZITHROMYCIN ANHYDROUS
     Indication: CYSTIC FIBROSIS
  9. INSULINE [Concomitant]
     Active Substance: INSULIN NOS
  10. CIPROFLOXACIN. [Suspect]
     Active Substance: CIPROFLOXACIN
     Indication: INFLUENZA LIKE ILLNESS
     Route: 048
  11. TOBRAMYCIN. [Suspect]
     Active Substance: TOBRAMYCIN
     Indication: INFECTIVE PULMONARY EXACERBATION OF CYSTIC FIBROSIS
     Route: 042
  12. CIPROFLOXACIN. [Suspect]
     Active Substance: CIPROFLOXACIN
     Indication: INFECTIVE PULMONARY EXACERBATION OF CYSTIC FIBROSIS
  13. MEROPENEM. [Suspect]
     Active Substance: MEROPENEM
     Indication: INFECTIVE PULMONARY EXACERBATION OF CYSTIC FIBROSIS
     Route: 042
  14. CICLESONIDE [Concomitant]
     Active Substance: CICLESONIDE
  15. OMALIZUMAB [Concomitant]
     Active Substance: OMALIZUMAB
     Route: 065
  16. PANCRELIPASE. [Concomitant]
     Active Substance: PANCRELIPASE

REACTIONS (2)
  - Toxic epidermal necrolysis [Recovered/Resolved]
  - Staphylococcal sepsis [Recovered/Resolved]
